FAERS Safety Report 9881462 (Version 1)
Quarter: 2014Q1

REPORT INFORMATION
  Report Type: Spontaneous
  Country: PT (occurrence: PT)
  Receive Date: 20140207
  Receipt Date: 20140207
  Transmission Date: 20141002
  Serious: Yes (Other)
  Sender: FDA-Public Use
  Company Number: PT-TEVA-460411ISR

PATIENT
  Sex: Female

DRUGS (1)
  1. CAPTOPRIL RATIOPHARM [Suspect]
     Route: 060

REACTIONS (2)
  - Burning sensation [Recovered/Resolved]
  - Product substitution issue [Unknown]
